FAERS Safety Report 9550967 (Version 1)
Quarter: 2013Q3

REPORT INFORMATION
  Report Type: Spontaneous
  Country: US (occurrence: US)
  Receive Date: 20130924
  Receipt Date: 20130924
  Transmission Date: 20140515
  Serious: No
  Sender: FDA-Public Use
  Company Number: US-SANOFI-AVENTIS-2013SA050843

PATIENT
  Age: 39 Year
  Sex: Female

DRUGS (5)
  1. AUBAGIO [Suspect]
     Indication: MULTIPLE SCLEROSIS
     Route: 048
     Dates: start: 20130404
  2. FOLAT IRON [Concomitant]
  3. OMEGA- 3 [Concomitant]
  4. B-COMPLEX [Concomitant]
  5. VITAMIN D-3 [Concomitant]

REACTIONS (2)
  - Alopecia [Recovered/Resolved]
  - Diarrhoea [Recovered/Resolved]
